FAERS Safety Report 12236260 (Version 1)
Quarter: 2016Q2

REPORT INFORMATION
  Report Type: Spontaneous
  Country: US (occurrence: US)
  Receive Date: 20160404
  Receipt Date: 20160404
  Transmission Date: 20160815
  Serious: Yes (Other)
  Sender: FDA-Public Use
  Company Number: US-PFIZER INC-2016186381

PATIENT
  Age: 17 Year
  Sex: Male

DRUGS (2)
  1. LYRICA [Suspect]
     Active Substance: PREGABALIN
     Dosage: 100 MG, 1X/DAY
  2. ZOLOFT [Concomitant]
     Active Substance: SERTRALINE HYDROCHLORIDE
     Indication: POST CONCUSSION SYNDROME
     Dosage: UNK
     Dates: start: 201506

REACTIONS (4)
  - Somnolence [Unknown]
  - Product use issue [Unknown]
  - Mental impairment [Unknown]
  - Dissociative amnesia [Unknown]
